FAERS Safety Report 8021374-9 (Version None)
Quarter: 2012Q1

REPORT INFORMATION
  Report Type: 
  Country: None (occurrence: None)
  Receive Date: 20120104
  Receipt Date: 20111229
  Transmission Date: 20120608
  Serious: Yes (Other)
  Sender: FDA-Public Use
  Company Number: US-PFIZER INC-2011316587

PATIENT
  Sex: Female

DRUGS (1)
  1. PREMPRO [Suspect]
     Dosage: 0.45/1.5
     Route: 048
     Dates: end: 20110101

REACTIONS (3)
  - LOCAL SWELLING [None]
  - SWELLING FACE [None]
  - METRORRHAGIA [None]
